FAERS Safety Report 12886037 (Version 1)
Quarter: 2016Q4

REPORT INFORMATION
  Report Type: Report from Study
  Country: US (occurrence: US)
  Receive Date: 20161026
  Receipt Date: 20161026
  Transmission Date: 20170207
  Serious: Yes (Hospitalization)
  Sender: FDA-Public Use
  Company Number: US-ACTELION-A-NJ2016-144322

PATIENT
  Age: 54 Year
  Sex: Female

DRUGS (1)
  1. OPSUMIT [Suspect]
     Active Substance: MACITENTAN
     Indication: PULMONARY ARTERIAL HYPERTENSION
     Dosage: 10 MG, QD
     Route: 048
     Dates: start: 20151008

REACTIONS (9)
  - Toxic encephalopathy [Unknown]
  - Loss of consciousness [Unknown]
  - Blood potassium decreased [Unknown]
  - Paraesthesia [Unknown]
  - Pyrexia [Unknown]
  - Kidney infection [Unknown]
  - Sinusitis [Unknown]
  - Nausea [Unknown]
  - Cystitis [Unknown]
